FAERS Safety Report 4430139-6 (Version None)
Quarter: 2004Q3

REPORT INFORMATION
  Report Type: 
  Country: None (occurrence: None)
  Receive Date: 20040819
  Receipt Date: 20040819
  Transmission Date: 20050211
  Serious: Yes (Other)
  Sender: FDA-Public Use
  Company Number: None

PATIENT
  Sex: Female
  Weight: 78.9259 kg

DRUGS (5)
  1. DEPO-PROVERA [Suspect]
     Indication: CONTRACEPTION
     Dosage: 150 MG 12 WEEKS INTRAMUSCLAR
     Route: 030
     Dates: start: 20030807, end: 20040430
  2. FLAGYL [Concomitant]
  3. CLOTRIMAZOLE [Concomitant]
  4. DIFLUCAN [Concomitant]
  5. FLAGYL [Concomitant]

REACTIONS (1)
  - UNINTENDED PREGNANCY [None]
